FAERS Safety Report 10416685 (Version 1)
Quarter: 2014Q3

REPORT INFORMATION
  Report Type: Spontaneous
  Country: US (occurrence: US)
  Receive Date: 20140828
  Receipt Date: 20140828
  Transmission Date: 20150326
  Serious: No
  Sender: FDA-Public Use
  Company Number: US-MYLAN-2014S1007337

PATIENT
  Sex: Female

DRUGS (2)
  1. LIOTHYRONINE SODIUM TABLETS, USP [Suspect]
     Active Substance: LIOTHYRONINE SODIUM
     Dosage: 5 ?G,QD
     Route: 048
     Dates: start: 20140327
  2. LEVOTHYROXINE SODIUM TABLETS, USP [Suspect]
     Active Substance: LEVOTHYROXINE SODIUM
     Dosage: 25 ?G,QD
     Route: 048
     Dates: start: 201402

REACTIONS (1)
  - Diarrhoea [Not Recovered/Not Resolved]

NARRATIVE: CASE EVENT DATE: 20140327
